FAERS Safety Report 5367677-8 (Version None)
Quarter: 2007Q2

REPORT INFORMATION
  Report Type: 
  Country: None (occurrence: None)
  Receive Date: 20070622
  Receipt Date: 20070222
  Transmission Date: 20071010
  Serious: No
  Sender: FDA-Public Use
  Company Number: US-ASTRAZENECA-2007UW00106

PATIENT
  Age: 87 Year
  Sex: Female
  Weight: 53.5 kg

DRUGS (8)
  1. PULMICORT [Suspect]
     Indication: ASTHMA
     Dosage: 200 MCG 200 DOSES/UNIT SAMPLE
     Route: 055
  2. DIGOXIN [Concomitant]
  3. FISH OIL [Concomitant]
  4. METOPROLOL SUCCINATE [Concomitant]
  5. BUMETANIDE [Concomitant]
  6. PROTONIX [Concomitant]
  7. COUMADIN [Concomitant]
  8. TETRACYCLINE [Concomitant]
     Indication: NASOPHARYNGITIS

REACTIONS (4)
  - DRY MOUTH [None]
  - INSOMNIA [None]
  - NAUSEA [None]
  - PSYCHOMOTOR HYPERACTIVITY [None]
